FAERS Safety Report 13708855 (Version 7)
Quarter: 2018Q2

REPORT INFORMATION
  Report Type: Report from Study
  Country: None (occurrence: US)
  Receive Date: 20170701
  Receipt Date: 20180522
  Transmission Date: 20180711
  Serious: Yes (Other)
  Sender: FDA-Public Use
  Company Number: US-ABBVIE-17K-163-1946691-00

PATIENT
  Age: 75 Year
  Sex: Female

DRUGS (9)
  1. METFORMIN [Concomitant]
     Active Substance: METFORMIN HYDROCHLORIDE
     Indication: TYPE 2 DIABETES MELLITUS
  2. CENTRUM [Concomitant]
     Active Substance: VITAMINS
     Indication: SUPPLEMENTATION THERAPY
  3. PREDNISONE. [Concomitant]
     Active Substance: PREDNISONE
     Indication: INFLAMMATION
  4. HUMIRA [Suspect]
     Active Substance: ADALIMUMAB
     Indication: RHEUMATOID ARTHRITIS
     Route: 058
     Dates: start: 201407, end: 201705
  5. TIZANIDINE. [Concomitant]
     Active Substance: TIZANIDINE
     Indication: MUSCLE SPASMS
  6. HUMIRA [Suspect]
     Active Substance: ADALIMUMAB
     Route: 058
     Dates: start: 2017
  7. ADVIL [Concomitant]
     Active Substance: IBUPROFEN
     Indication: PAIN
  8. LIPITOR [Concomitant]
     Active Substance: ATORVASTATIN CALCIUM
     Indication: BLOOD CHOLESTEROL INCREASED
  9. CALCIUM [Concomitant]
     Active Substance: CALCIUM
     Indication: SUPPLEMENTATION THERAPY

REACTIONS (22)
  - Dysarthria [Unknown]
  - Musculoskeletal stiffness [Unknown]
  - Eczema [Unknown]
  - Nasopharyngitis [Unknown]
  - Migraine [Recovered/Resolved]
  - Discomfort [Unknown]
  - Transient ischaemic attack [Recovered/Resolved]
  - Vascular compression [Unknown]
  - Blood pressure fluctuation [Unknown]
  - Hypoaesthesia [Recovered/Resolved]
  - Rheumatoid arthritis [Not Recovered/Not Resolved]
  - Synovial rupture [Unknown]
  - Hypoaesthesia [Recovered/Resolved]
  - Hypertension [Recovered/Resolved]
  - Diabetes mellitus [Unknown]
  - Muscle spasms [Recovering/Resolving]
  - Synovial cyst [Not Recovered/Not Resolved]
  - Hypoaesthesia [Recovered/Resolved]
  - Transient ischaemic attack [Recovered/Resolved]
  - Fatigue [Unknown]
  - Muscle injury [Unknown]
  - Inflammation [Unknown]

NARRATIVE: CASE EVENT DATE: 2016
